FAERS Safety Report 5631184-5 (Version None)
Quarter: 2008Q1

REPORT INFORMATION
  Report Type: 
  Country: None (occurrence: None)
  Receive Date: 20080131
  Receipt Date: 20071029
  Transmission Date: 20080703
  Serious: No
  Sender: FDA-Public Use
  Company Number: 163-21880-07101711

PATIENT
  Age: 53 Year
  Sex: Female

DRUGS (3)
  1. REVLIMID [Suspect]
     Indication: MULTIPLE MYELOMA
     Dosage: 25 MG, DAILY X 21 DAYS, ORAL; 25 MG, 1 IN 1 D, ORAL
     Route: 048
     Dates: start: 20060725, end: 20061130
  2. REVLIMID [Suspect]
     Indication: MULTIPLE MYELOMA
     Dosage: 25 MG, DAILY X 21 DAYS, ORAL; 25 MG, 1 IN 1 D, ORAL
     Route: 048
     Dates: start: 20061201
  3. FLU SHOT (INFLUENZA VACCINE) (INJECTION) [Concomitant]

REACTIONS (4)
  - INSOMNIA [None]
  - MALAISE [None]
  - PRURITUS [None]
  - RASH [None]
